FAERS Safety Report 15434742 (Version 1)
Quarter: 2018Q3

REPORT INFORMATION
  Report Type: Spontaneous
  Country: JP (occurrence: JP)
  Receive Date: 20180927
  Receipt Date: 20180927
  Transmission Date: 20181010
  Serious: Yes (Other)
  Sender: FDA-Public Use
  Company Number: JP-PFIZER INC-2018378170

PATIENT
  Sex: Female

DRUGS (2)
  1. CORTRIL [Suspect]
     Active Substance: HYDROCORTISONE
     Dosage: 5 MG, 3X/DAY DEPENDING ON THE PHYSICAL CONDITION IN THE MORNING
     Route: 048
  2. CORTRIL [Suspect]
     Active Substance: HYDROCORTISONE
     Indication: ADRENAL INSUFFICIENCY
     Dosage: 15 MG, DAILY (AT 10 MG IN THE MORNING AND AT 5 MG IN THE EVENING)
     Route: 048

REACTIONS (17)
  - Pain in extremity [Unknown]
  - Urticaria [Unknown]
  - Gait disturbance [Unknown]
  - Asthenia [Unknown]
  - Muscular weakness [Unknown]
  - Central obesity [Unknown]
  - Internal haemorrhage [Unknown]
  - Therapeutic response decreased [Unknown]
  - Arthralgia [Unknown]
  - Arthropathy [Unknown]
  - Faeces hard [Unknown]
  - Contusion [Unknown]
  - Musculoskeletal stiffness [Unknown]
  - Hyperacusis [Unknown]
  - Alopecia [Unknown]
  - Photophobia [Unknown]
  - Oedema peripheral [Unknown]
